FAERS Safety Report 5054139-0 (Version None)
Quarter: 2006Q3

REPORT INFORMATION
  Report Type: 
  Country: None (occurrence: None)
  Receive Date: 20060713
  Receipt Date: 20060703
  Transmission Date: 20061208
  Serious: Yes (Other)
  Sender: FDA-Public Use
  Company Number: TCI2006A02676

PATIENT
  Age: 57 Year
  Sex: Male

DRUGS (2)
  1. ACTOS [Suspect]
     Indication: DIABETES MELLITUS
     Dosage: 30 MG (30 MG, 1 IN 1 D) PER ORAL
     Route: 048
     Dates: start: 20060412, end: 20060511
  2. TANATRIL (IMIDAPRIL HYDROCHLORIDE) [Concomitant]

REACTIONS (3)
  - DRUG ERUPTION [None]
  - GENERALISED ERYTHEMA [None]
  - PRURITUS [None]
